FAERS Safety Report 12656869 (Version 1)
Quarter: 2016Q3

REPORT INFORMATION
  Report Type: Spontaneous
  Country: US (occurrence: US)
  Receive Date: 20160816
  Receipt Date: 20160816
  Transmission Date: 20161109
  Serious: No
  Sender: FDA-Public Use
  Company Number: US-PERRIGO-16US015316

PATIENT
  Sex: Male
  Weight: 117.91 kg

DRUGS (7)
  1. METFORMIN [Concomitant]
     Active Substance: METFORMIN HYDROCHLORIDE
     Indication: GLUCOSE TOLERANCE IMPAIRED
     Dosage: UNK
     Route: 065
     Dates: start: 2015
  2. LORATADINE. [Suspect]
     Active Substance: LORATADINE
     Indication: NASAL PRURITUS
  3. ATENOLOL. [Concomitant]
     Active Substance: ATENOLOL
     Indication: HYPERTENSION
     Dosage: UNK
     Route: 065
  4. LISINOPRIL. [Concomitant]
     Active Substance: LISINOPRIL
     Indication: HYPERTENSION
     Dosage: UNK
     Route: 065
  5. LORATADINE. [Suspect]
     Active Substance: LORATADINE
     Indication: NASAL CONGESTION
     Dosage: 10 MG, QD
     Route: 048
     Dates: start: 2011
  6. LORATADINE. [Suspect]
     Active Substance: LORATADINE
     Indication: THROAT IRRITATION
  7. LORATADINE. [Suspect]
     Active Substance: LORATADINE
     Indication: SNEEZING

REACTIONS (2)
  - Drug effect decreased [Unknown]
  - Off label use [Unknown]

NARRATIVE: CASE EVENT DATE: 2011
